FAERS Safety Report 9920262 (Version 2)
Quarter: 2014Q1

REPORT INFORMATION
  Report Type: Spontaneous
  Country: FR (occurrence: FR)
  Receive Date: 20140224
  Receipt Date: 20140303
  Transmission Date: 20141002
  Serious: Yes (Life-Threatening)
  Sender: FDA-Public Use
  Company Number: PHHY2014FR021207

PATIENT
  Age: 83 Year
  Sex: Female

DRUGS (8)
  1. ZOMETA [Suspect]
     Indication: HYPERCALCAEMIA
     Dosage: 4 MG, UNK
     Route: 042
     Dates: start: 20140211, end: 20140211
  2. MIACALCIC [Suspect]
     Indication: HYPERCALCAEMIA
     Dosage: 300 U, TID
     Route: 042
     Dates: start: 20140211, end: 20140212
  3. CELECTOL [Concomitant]
     Dosage: UNK UKN, UNK
  4. PARACETAMOL [Concomitant]
     Indication: PAIN
     Dosage: 1 G, TID
     Route: 048
     Dates: start: 20140210, end: 20140222
  5. FOLIC ACID [Concomitant]
     Indication: ANAEMIA
     Dosage: UNK UKN, UNK
  6. ECONAZOLE [Concomitant]
     Dosage: UNK UKN, UNK
  7. PHOCYTAN [Concomitant]
     Dosage: UNK UKN, UNK
     Dates: start: 20140214, end: 20140216
  8. CELIPROLOL [Concomitant]
     Indication: HYPERTENSION
     Dosage: 200 MG, DAILY
     Route: 048
     Dates: end: 20140215

REACTIONS (5)
  - Haemolytic anaemia [Not Recovered/Not Resolved]
  - Thrombocytopenia [Not Recovered/Not Resolved]
  - Tachycardia [Unknown]
  - Fatigue [Unknown]
  - Blood pressure decreased [Unknown]
